FAERS Safety Report 10571688 (Version 2)
Quarter: 2014Q4

REPORT INFORMATION
  Report Type: Spontaneous
  Country: BR (occurrence: BR)
  Receive Date: 20141107
  Receipt Date: 20141121
  Transmission Date: 20150529
  Serious: Yes (Death, Hospitalization)
  Sender: FDA-Public Use
  Company Number: BR-BIOMARINAP-BR-2014-104588

PATIENT
  Age: 30 Month
  Sex: Female

DRUGS (1)
  1. ALDURAZYME [Suspect]
     Active Substance: LARONIDASE
     Indication: MUCOPOLYSACCHARIDOSIS I
     Dosage: 0.58 MG/KG, QW
     Route: 042
     Dates: start: 20140819

REACTIONS (4)
  - Sepsis [Fatal]
  - Disease progression [Unknown]
  - Neurological symptom [Unknown]
  - Tracheostomy [Unknown]

NARRATIVE: CASE EVENT DATE: 20141031
